FAERS Safety Report 15403780 (Version 2)
Quarter: 2020Q2

REPORT INFORMATION
  Report Type: Report from Study
  Country: GB (occurrence: GB)
  Receive Date: 20180919
  Receipt Date: 20200625
  Transmission Date: 20200713
  Serious: Yes (Hospitalization)
  Sender: FDA-Public Use
  Company Number: GB-ASTRAZENECA-2018SF19697

PATIENT
  Age: 24964 Day
  Sex: Male

DRUGS (27)
  1. MEDI4736 [Suspect]
     Active Substance: DURVALUMAB
     Indication: SQUAMOUS CELL CARCINOMA OF HEAD AND NECK
     Dosage: 1500 MG
     Route: 042
     Dates: start: 20180403, end: 20180403
  2. AZD6738 [Suspect]
     Active Substance: CERALASERTIB
     Indication: SQUAMOUS CELL CARCINOMA OF HEAD AND NECK
     Dosage: 240 MG
     Route: 048
     Dates: start: 20180417, end: 20180419
  3. AZD6738 [Suspect]
     Active Substance: CERALASERTIB
     Indication: SQUAMOUS CELL CARCINOMA OF HEAD AND NECK
     Dosage: 240 MG
     Route: 048
     Dates: start: 20180515, end: 20180528
  4. AZD6738 [Suspect]
     Active Substance: CERALASERTIB
     Indication: NON-SMALL CELL LUNG CANCER
     Dosage: 240 MG
     Route: 048
     Dates: start: 20180421, end: 20180430
  5. MEDI4736 [Suspect]
     Active Substance: DURVALUMAB
     Indication: NON-SMALL CELL LUNG CANCER
     Dosage: 1500 MG
     Route: 042
     Dates: start: 20180626, end: 20180626
  6. MEDI4736 [Suspect]
     Active Substance: DURVALUMAB
     Indication: SQUAMOUS CELL CARCINOMA OF HEAD AND NECK
     Dosage: 1500 MG
     Route: 042
     Dates: start: 20180626, end: 20180626
  7. AZD6738 [Suspect]
     Active Substance: CERALASERTIB
     Indication: NON-SMALL CELL LUNG CANCER
     Dosage: 240 MG
     Route: 048
     Dates: start: 20180320, end: 20180320
  8. AZD6738 [Suspect]
     Active Substance: CERALASERTIB
     Indication: NON-SMALL CELL LUNG CANCER
     Dosage: 240 MG
     Route: 048
     Dates: start: 20180515, end: 20180528
  9. MEDI4736 [Suspect]
     Active Substance: DURVALUMAB
     Indication: SQUAMOUS CELL CARCINOMA OF HEAD AND NECK
     Dosage: 1500 MG
     Route: 042
     Dates: start: 20180529, end: 20180529
  10. MEDI4736 [Suspect]
     Active Substance: DURVALUMAB
     Indication: NON-SMALL CELL LUNG CANCER
     Dosage: 1500 MG
     Route: 042
     Dates: start: 20180529, end: 20180529
  11. AZD6738 [Suspect]
     Active Substance: CERALASERTIB
     Indication: NON-SMALL CELL LUNG CANCER
     Dosage: 240 MG
     Route: 048
     Dates: start: 20180321, end: 20180402
  12. MEDI4736 [Suspect]
     Active Substance: DURVALUMAB
     Indication: NON-SMALL CELL LUNG CANCER
     Dosage: 1500 MG
     Route: 042
     Dates: start: 20180403, end: 20180403
  13. MEDI4736 [Suspect]
     Active Substance: DURVALUMAB
     Indication: NON-SMALL CELL LUNG CANCER
     Dosage: 1500 MG
     Route: 042
     Dates: start: 20180501, end: 20180501
  14. AZD6738 [Suspect]
     Active Substance: CERALASERTIB
     Indication: NON-SMALL CELL LUNG CANCER
     Dosage: 240 MG
     Route: 048
     Dates: start: 20180417, end: 20180419
  15. AZD6738 [Suspect]
     Active Substance: CERALASERTIB
     Indication: SQUAMOUS CELL CARCINOMA OF HEAD AND NECK
     Dosage: 240 MG
     Route: 048
     Dates: start: 20180421, end: 20180430
  16. AZD6738 [Suspect]
     Active Substance: CERALASERTIB
     Indication: NON-SMALL CELL LUNG CANCER
     Dosage: 240 MG
     Route: 048
     Dates: start: 20180612, end: 20180625
  17. LANSOPRAZOLE. [Concomitant]
     Active Substance: LANSOPRAZOLE
     Indication: PROPHYLAXIS
     Route: 048
     Dates: start: 20180710, end: 20180805
  18. AZD6738 [Suspect]
     Active Substance: CERALASERTIB
     Indication: SQUAMOUS CELL CARCINOMA OF HEAD AND NECK
     Dosage: 240 MG
     Route: 048
     Dates: start: 20180320, end: 20180320
  19. AZD6738 [Suspect]
     Active Substance: CERALASERTIB
     Indication: SQUAMOUS CELL CARCINOMA OF HEAD AND NECK
     Dosage: 240 MG
     Route: 048
     Dates: start: 20180321, end: 20180402
  20. AZD6738 [Suspect]
     Active Substance: CERALASERTIB
     Indication: SQUAMOUS CELL CARCINOMA OF HEAD AND NECK
     Dosage: 240 MG
     Route: 048
     Dates: start: 20180420, end: 20180420
  21. AZD6738 [Suspect]
     Active Substance: CERALASERTIB
     Indication: NON-SMALL CELL LUNG CANCER
     Dosage: 240 MG
     Route: 048
     Dates: start: 20180420, end: 20180420
  22. CETIRIZINE [Concomitant]
     Active Substance: CETIRIZINE HYDROCHLORIDE
     Indication: SEASONAL ALLERGY
     Route: 048
     Dates: start: 20180420
  23. IBUPROFEN. [Concomitant]
     Active Substance: IBUPROFEN
     Indication: ARTHRITIS
     Route: 048
     Dates: start: 20180713, end: 20180716
  24. MEDI4736 [Suspect]
     Active Substance: DURVALUMAB
     Indication: SQUAMOUS CELL CARCINOMA OF HEAD AND NECK
     Dosage: 1500 MG
     Route: 042
     Dates: start: 20180501, end: 20180501
  25. AZD6738 [Suspect]
     Active Substance: CERALASERTIB
     Indication: SQUAMOUS CELL CARCINOMA OF HEAD AND NECK
     Dosage: 240 MG
     Route: 048
     Dates: start: 20180612, end: 20180625
  26. VENTOLIN [Concomitant]
     Active Substance: ALBUTEROL SULFATE
     Indication: SEASONAL ALLERGY
     Route: 055
     Dates: start: 20180420
  27. IBUPROFEN. [Concomitant]
     Active Substance: IBUPROFEN
     Indication: ARTHRITIS
     Route: 048
     Dates: start: 20180710, end: 20180712

REACTIONS (1)
  - Immune-mediated neuropathy [Not Recovered/Not Resolved]

NARRATIVE: CASE EVENT DATE: 20180720
